FAERS Safety Report 23666244 (Version 2)
Quarter: 2024Q3

REPORT INFORMATION
  Report Type: Spontaneous
  Country: US (occurrence: None)
  Receive Date: 20240324
  Receipt Date: 20240731
  Transmission Date: 20241017
  Serious: No
  Sender: ASTRAZENECA
  Company Number: 2024A057446

PATIENT
  Age: 27483 Day

DRUGS (1)
  1. BYDUREON BCISE [Suspect]
     Active Substance: EXENATIDE
     Dosage: 2.0MG UNKNOWN

REACTIONS (2)
  - Visual impairment [Unknown]
  - Device leakage [Unknown]

NARRATIVE: CASE EVENT DATE: 20240307
